FAERS Safety Report 6306642-0 (Version None)
Quarter: 2009Q3

REPORT INFORMATION
  Report Type: 
  Country: None (occurrence: None)
  Receive Date: 20090811
  Receipt Date: 20090811
  Transmission Date: 20100115
  Serious: Yes (Other)
  Sender: FDA-Public Use
  Company Number: None

PATIENT
  Age: 62 Year
  Sex: Male
  Weight: 88 kg

DRUGS (1)
  1. LAMOTRIGINE [Suspect]
     Indication: BIPOLAR DISORDER
     Dosage: 100 MG EVERY DAY PO
     Route: 048
     Dates: start: 20070201, end: 20081103

REACTIONS (2)
  - TARDIVE DYSKINESIA [None]
  - TREATMENT NONCOMPLIANCE [None]
